FAERS Safety Report 6159912-3 (Version None)
Quarter: 2009Q2

REPORT INFORMATION
  Report Type: 
  Country: None (occurrence: None)
  Receive Date: 20090416
  Receipt Date: 20090403
  Transmission Date: 20091009
  Serious: Yes (Hospitalization)
  Sender: FDA-Public Use
  Company Number: 232721K09USA

PATIENT
  Age: 46 Year
  Sex: Female
  Weight: 68 kg

DRUGS (7)
  1. REBIF [Suspect]
     Indication: MULTIPLE SCLEROSIS
     Dosage: 44 MCG, 3 IN 1 WEEKS,
     Dates: start: 20080519, end: 20090306
  2. PHENTERMINE [Concomitant]
  3. CENESTIN [Concomitant]
  4. LEVOTHYROXINE SODIUM [Concomitant]
  5. ASPIRIN [Concomitant]
  6. GABAPENTIN [Concomitant]
  7. FISH OIL (FISH OIL) [Concomitant]

REACTIONS (6)
  - APPENDICITIS [None]
  - HYPERTENSION [None]
  - INFLUENZA LIKE ILLNESS [None]
  - INJECTION SITE PAIN [None]
  - PAIN [None]
  - URINARY RETENTION [None]
